FAERS Safety Report 5078724-5 (Version None)
Quarter: 2006Q3

REPORT INFORMATION
  Report Type: 
  Country: None (occurrence: None)
  Receive Date: 20060809
  Receipt Date: 20060809
  Transmission Date: 20061208
  Serious: Yes (Disabling)
  Sender: FDA-Public Use
  Company Number: None

PATIENT
  Sex: Female
  Weight: 52.1637 kg

DRUGS (1)
  1. DEPO-PROVERA SUSPENSION/INJ [Suspect]
     Indication: ANAEMIA
     Dates: start: 19980616, end: 20050609

REACTIONS (3)
  - AMENORRHOEA [None]
  - OSTEOPENIA [None]
  - OSTEOPOROSIS [None]
